FAERS Safety Report 9410633 (Version 1)
Quarter: 2013Q3

REPORT INFORMATION
  Report Type: Spontaneous
  Country: US (occurrence: US)
  Receive Date: 20130719
  Receipt Date: 20130719
  Transmission Date: 20140515
  Serious: Yes (Other)
  Sender: FDA-Public Use
  Company Number: US-BAYER-2013-085324

PATIENT
  Sex: Female

DRUGS (1)
  1. MIRENA [Suspect]
     Dosage: 20 ?G/D, CONT
     Route: 015
     Dates: start: 201012

REACTIONS (7)
  - Autoimmune disorder [None]
  - Amenorrhoea [None]
  - Alopecia [None]
  - Dry skin [None]
  - Hair texture abnormal [None]
  - Loss of libido [None]
  - Mood swings [None]
